FAERS Safety Report 5388409-3 (Version None)
Quarter: 2007Q3

REPORT INFORMATION
  Report Type: 
  Country: None (occurrence: None)
  Receive Date: 20070716
  Receipt Date: 20070706
  Transmission Date: 20080115
  Serious: Yes (Hospitalization)
  Sender: FDA-Public Use
  Company Number: US-JNJFOC-20060604220

PATIENT
  Sex: Female
  Weight: 68.95 kg

DRUGS (6)
  1. ORTHO EVRA [Suspect]
     Indication: POLYCYSTIC OVARIES
     Route: 062
     Dates: start: 20021001, end: 20030101
  2. ORTHO EVRA [Suspect]
     Indication: CONTRACEPTION
     Route: 062
     Dates: start: 20021001, end: 20030101
  3. ZYRTEC [Concomitant]
  4. FLONAISE [Concomitant]
  5. ALBUTERAL [Concomitant]
     Dosage: TWO PUFFS FOUR TIMES A DAY AS NEEDED
  6. GLUCOPHAGE [Concomitant]
     Indication: POLYCYSTIC OVARIES
     Route: 048

REACTIONS (9)
  - ACUTE SINUSITIS [None]
  - ANAEMIA [None]
  - ASTHMA [None]
  - BRONCHITIS [None]
  - PLEURISY [None]
  - PNEUMONIA [None]
  - PNEUMONITIS [None]
  - PULMONARY EMBOLISM [None]
  - RHINITIS ALLERGIC [None]
